FAERS Safety Report 19191328 (Version 1)
Quarter: 2021Q2

REPORT INFORMATION
  Report Type: Spontaneous
  Country: JP (occurrence: JP)
  Receive Date: 20210428
  Receipt Date: 20210428
  Transmission Date: 20210717
  Serious: Yes (Hospitalization)
  Sender: FDA-Public Use
  Company Number: JP-DSJP-DSJ-2021-113086

PATIENT
  Age: 71 Year
  Sex: Male

DRUGS (7)
  1. QUETIAPINE                         /01270902/ [Suspect]
     Active Substance: QUETIAPINE FUMARATE
     Dosage: 25MG/DAY
     Route: 065
  2. NALFURAFINE HYDROCHLORIDE [Concomitant]
     Active Substance: NALFURAFINE HYDROCHLORIDE
     Dosage: UNK
     Route: 048
  3. FEBUXOSTAT. [Concomitant]
     Active Substance: FEBUXOSTAT
     Dosage: UNK
     Route: 048
  4. FERRIC CITRATE [Concomitant]
     Active Substance: TETRAFERRIC TRICITRATE DECAHYDRATE
     Dosage: UNK
     Route: 048
  5. OLMETEC OD [Suspect]
     Active Substance: OLMESARTAN MEDOXOMIL
     Indication: PRODUCT USED FOR UNKNOWN INDICATION
     Dosage: UNK
     Route: 048
  6. LANTHANUM CARBONATE. [Concomitant]
     Active Substance: LANTHANUM CARBONATE
     Dosage: UNK
     Route: 048
  7. EVOCALCET [Concomitant]
     Active Substance: EVOCALCET
     Dosage: UNK
     Route: 048

REACTIONS (2)
  - Basal ganglia stroke [Unknown]
  - Thrombotic microangiopathy [Recovered/Resolved]
